FAERS Safety Report 18341693 (Version 1)
Quarter: 2020Q4

REPORT INFORMATION
  Report Type: Report from Study
  Country: JP (occurrence: JP)
  Receive Date: 20201005
  Receipt Date: 20201005
  Transmission Date: 20210113
  Serious: Yes (Hospitalization, Other)
  Sender: FDA-Public Use
  Company Number: JP-CELLTRION INC.-2020JP028319

PATIENT

DRUGS (4)
  1. CT-P13 [Suspect]
     Active Substance: INFLIXIMAB-DYYB
     Indication: COLITIS ULCERATIVE
     Dosage: 280 MILLIGRAM
     Route: 042
     Dates: start: 20181120, end: 20181120
  2. MESALAZINE [Concomitant]
     Active Substance: MESALAMINE
     Dosage: 1600 MILLIGRAM, DAILY
     Route: 048
     Dates: start: 20170606
  3. CT-P13 [Suspect]
     Active Substance: INFLIXIMAB-DYYB
     Dosage: 285 MILLIGRAM
     Route: 042
     Dates: start: 20191030, end: 20191030
  4. AZATHIOPRINE. [Concomitant]
     Active Substance: AZATHIOPRINE
     Dosage: 50 MILLIGRAM, DAILY
     Route: 048
     Dates: start: 20161220

REACTIONS (7)
  - Product use issue [Unknown]
  - Atrial fibrillation [Not Recovered/Not Resolved]
  - Off label use [Unknown]
  - Overdose [Unknown]
  - Cardiac failure chronic [Recovered/Resolved]
  - Enterocolitis [Unknown]
  - Psoriasis [Unknown]

NARRATIVE: CASE EVENT DATE: 20190317
